FAERS Safety Report 10369051 (Version 1)
Quarter: 2014Q1

REPORT INFORMATION
  Report Type: Spontaneous
  Country: US (occurrence: None)
  Receive Date: 20140306
  Receipt Date: 20140306
  Transmission Date: 20141002
  Serious: Yes (Hospitalization)
  Sender: FDA-Public Use
  Company Number: 163-21880-13022101

PATIENT
  Age: 81 Year
  Sex: Male
  Weight: 90.72 kg

DRUGS (10)
  1. REVLIMID (LENALIDOMIDE) (15 MILLIGRAM, CAPSULES) [Suspect]
     Indication: PLASMA CELL MYELOMA
     Dosage: 12/05/2012 - TEMP. INTERRUPTED
     Route: 048
     Dates: start: 20121205
  2. ACYCLIVOR (ACICLOVIR) [Concomitant]
  3. ATENOLOL (ATENOLOL) [Concomitant]
  4. DEXAMETHASONE (DEXAMETHASONE) [Concomitant]
  5. ESSENTIALMAN (MULTIVITAMINS) [Concomitant]
  6. FISH OIL (FISH OIL) [Concomitant]
  7. IRON (IRON) [Concomitant]
  8. LEVOFLOXACIN (LEVOFLOXACIN) [Concomitant]
  9. LOVASTATIN (LOVASTATIN) [Concomitant]
  10. FLUTICASONE PROPIONATE (FLUTICASONE PROPIONATE) (FLUTICASONE PROPIONATE) [Concomitant]

REACTIONS (1)
  - Infection [None]
